FAERS Safety Report 20097768 (Version 16)
Quarter: 2025Q2

REPORT INFORMATION
  Report Type: Report from Study
  Country: DE (occurrence: DE)
  Receive Date: 20211122
  Receipt Date: 20250521
  Transmission Date: 20250717
  Serious: No
  Sender: TAKEDA
  Company Number: DE-TAKEDA-2021TUS073567

PATIENT
  Age: 58 Year
  Sex: Male

DRUGS (44)
  1. TEDUGLUTIDE [Suspect]
     Active Substance: TEDUGLUTIDE
     Indication: Short-bowel syndrome
     Dosage: 1.9 MILLIGRAM, QD
     Dates: start: 20170511, end: 201711
  2. TEDUGLUTIDE [Suspect]
     Active Substance: TEDUGLUTIDE
     Dosage: 1.9 MILLIGRAM, QD
     Dates: start: 20171201, end: 201804
  3. TEDUGLUTIDE [Suspect]
     Active Substance: TEDUGLUTIDE
  4. TEDUGLUTIDE [Suspect]
     Active Substance: TEDUGLUTIDE
  5. FALITHROM [Concomitant]
     Active Substance: PHENPROCOUMON
     Indication: Product used for unknown indication
  6. LOPERAMIDE [Concomitant]
     Active Substance: LOPERAMIDE
     Indication: Product used for unknown indication
  7. MOXIFLOXACIN [Concomitant]
     Active Substance: MOXIFLOXACIN
     Indication: Product used for unknown indication
     Dosage: 400 MILLIGRAM, QD
     Dates: start: 20180115, end: 20180123
  8. CALCIUM CARBONATE\ERGOCALCIFEROL\RETINOL [Concomitant]
     Active Substance: CALCIUM CARBONATE\ERGOCALCIFEROL\RETINOL
     Indication: Product used for unknown indication
     Dosage: 0.5 MICROGRAM, QD
     Dates: start: 201801, end: 201812
  9. LEVOTHYROXINE [Concomitant]
     Active Substance: LEVOTHYROXINE
     Dosage: UNK UNK, QD
     Dates: start: 20220113
  10. MELATONIN [Concomitant]
     Active Substance: MELATONIN
  11. MIRTAZAPINE [Concomitant]
     Active Substance: MIRTAZAPINE
     Indication: Adjustment disorder with depressed mood
     Dosage: 45 MILLIGRAM, QD
     Dates: start: 20220112
  12. ERYTHROPOIETIN [Concomitant]
     Active Substance: ERYTHROPOIETIN
     Indication: Nephrogenic anaemia
     Dosage: 8000 INTERNATIONAL UNIT, TID
     Dates: start: 20220113
  13. NAPROXEN [Concomitant]
     Active Substance: NAPROXEN
     Indication: Systemic lupus erythematosus
  14. HYDROXYCHLOROQUINE [Concomitant]
     Active Substance: HYDROXYCHLOROQUINE
     Indication: Systemic lupus erythematosus
  15. FOLIC ACID [Concomitant]
     Active Substance: FOLIC ACID
     Indication: Vitamin supplementation
  16. VITAMIN B12 [Concomitant]
     Active Substance: CYANOCOBALAMIN
     Indication: Supplementation therapy
  17. PANTOPRAZOLE [Concomitant]
     Active Substance: PANTOPRAZOLE
     Indication: Prophylaxis
     Dosage: 40 MILLIGRAM, BID
     Dates: start: 202206
  18. CALCIUM ACETATE [Concomitant]
     Active Substance: CALCIUM ACETATE
     Indication: Supplementation therapy
     Dosage: 175 MILLIGRAM, TID
     Dates: start: 202206
  19. ATORVASTATIN [Concomitant]
     Active Substance: ATORVASTATIN
     Indication: Product used for unknown indication
     Dosage: 40 MILLIGRAM, QD
     Dates: start: 202206
  20. HYDROXYCHLOROQUINE [Concomitant]
     Active Substance: HYDROXYCHLOROQUINE
     Indication: Systemic lupus erythematosus
     Dosage: 200 MILLIGRAM, BID
     Dates: start: 2022
  21. ARANESP [Concomitant]
     Active Substance: DARBEPOETIN ALFA
     Indication: Anaemia
     Dosage: 80 MICROGRAM, 1/WEEK
     Dates: start: 20160928
  22. TORSEMIDE [Concomitant]
     Active Substance: TORSEMIDE
     Indication: Renal failure
     Dosage: 50 MILLIGRAM, QD
     Dates: start: 201806
  23. SPIRONOLACTONE [Concomitant]
     Active Substance: SPIRONOLACTONE
     Indication: Hypervolaemia
     Dosage: 100 MILLIGRAM, QD
     Dates: start: 201806
  24. XIPAMIDE [Concomitant]
     Active Substance: XIPAMIDE
     Indication: Hypervolaemia
     Dosage: 20 MILLIGRAM, QD
     Dates: start: 20180101
  25. FERRLECIT [Concomitant]
     Active Substance: SODIUM FERRIC GLUCONATE COMPLEX
     Indication: Nephrogenic anaemia
  26. MARCUMAR [Concomitant]
     Active Substance: PHENPROCOUMON
     Indication: Hypercoagulation
  27. ALFACALCIDOL [Concomitant]
     Active Substance: ALFACALCIDOL
     Indication: Hypocalcaemia
  28. Carmen [Concomitant]
     Indication: Hypertension
     Dosage: 10 MILLIGRAM, QD
     Dates: start: 20180101
  29. MOXONIDINE [Concomitant]
     Active Substance: MOXONIDINE
     Indication: Hypertension
     Dosage: 0.3 MILLIGRAM, BID
     Dates: start: 201801
  30. ALUMINUM CHLOROHYDRATE [Concomitant]
     Active Substance: ALUMINUM CHLOROHYDRATE
     Dosage: 600 MILLIGRAM, BID
     Dates: start: 201801
  31. Doxacor [Concomitant]
     Dosage: 6 MILLIGRAM, BID
     Dates: start: 201801
  32. RENAGEL [Concomitant]
     Active Substance: SEVELAMER HYDROCHLORIDE
     Dosage: 1600 MILLIGRAM, TID
     Dates: start: 201801
  33. BUPRENORPHINE [Concomitant]
     Active Substance: BUPRENORPHINE
  34. DIMENHYDRINATE [Concomitant]
     Active Substance: DIMENHYDRINATE
     Indication: Nausea
  35. ZINC [Concomitant]
     Active Substance: ZINC
     Indication: Supplementation therapy
     Dosage: 10 MILLIGRAM, QD
     Dates: start: 20220119
  36. HYDROMORPHONE [Concomitant]
     Active Substance: HYDROMORPHONE
     Indication: Pain
     Dosage: 2 MILLIGRAM, BID
     Dates: start: 20220112
  37. ENOXAPARIN [Concomitant]
     Active Substance: ENOXAPARIN
     Dosage: 4000 INTERNATIONAL UNIT, BID
     Dates: start: 20220112
  38. PREGABALIN [Concomitant]
     Active Substance: PREGABALIN
     Indication: Pain
     Dosage: 20 MILLIGRAM, QD
     Dates: start: 20220113
  39. Selenase [Concomitant]
     Indication: Supplementation therapy
     Dosage: 300 MICROGRAM, QD
     Dates: start: 20220113
  40. EPOETIN ALFA [Concomitant]
     Active Substance: ERYTHROPOIETIN
     Indication: Nephrogenic anaemia
  41. CHOLECALCIFEROL [Concomitant]
     Active Substance: CHOLECALCIFEROL
     Indication: Vitamin D deficiency
     Dosage: UNK UNK, QD
     Dates: start: 20220330
  42. Dropizol [Concomitant]
     Indication: Diarrhoea
  43. SODIUM BICARBONATE [Concomitant]
     Active Substance: SODIUM BICARBONATE
  44. MAGNESIUM [Concomitant]
     Active Substance: MAGNESIUM
     Indication: Hypomagnesaemia
     Dosage: 300 MILLIGRAM, QD
     Dates: start: 20220330

REACTIONS (7)
  - Post procedural haemorrhage [Recovered/Resolved]
  - Hiatus hernia [Not Recovered/Not Resolved]
  - Pleural effusion [Recovered/Resolved]
  - Ear pain [Recovered/Resolved]
  - White matter lesion [Not Recovered/Not Resolved]
  - Hypoacusis [Not Recovered/Not Resolved]
  - Large intestine polyp [Recovered/Resolved]

NARRATIVE: CASE EVENT DATE: 20210919
